FAERS Safety Report 6274445-1 (Version None)
Quarter: 2009Q3

REPORT INFORMATION
  Report Type: 
  Country: None (occurrence: None)
  Receive Date: 20090716
  Receipt Date: 20090701
  Transmission Date: 20100115
  Serious: Yes (Hospitalization)
  Sender: FDA-Public Use
  Company Number: SP02446

PATIENT
  Age: 66 Year
  Sex: Female
  Weight: 50.8029 kg

DRUGS (4)
  1. OSMOPREP [Suspect]
     Indication: BOWEL PREPARATION
     Dosage: SPLIT DOSE REGIMEN, ORAL
     Route: 048
     Dates: start: 20090604, end: 20090605
  2. PREMPRO [Concomitant]
  3. ASPIRIN [Concomitant]
  4. TELMISARTAN [Concomitant]

REACTIONS (3)
  - BIOPSY KIDNEY ABNORMAL [None]
  - MALAISE [None]
  - RENAL FAILURE [None]
